FAERS Safety Report 6160302-8 (Version None)
Quarter: 2009Q2

REPORT INFORMATION
  Report Type: 
  Country: None (occurrence: None)
  Receive Date: 20090420
  Receipt Date: 20090409
  Transmission Date: 20091009
  Serious: Yes (Other)
  Sender: FDA-Public Use
  Company Number: JP-NOVOPROD-285898

PATIENT
  Sex: Male
  Weight: 83 kg

DRUGS (3)
  1. LEVEMIR [Suspect]
     Indication: TYPE 2 DIABETES MELLITUS
     Dosage: 10 IU, QD
     Route: 058
     Dates: start: 20090123, end: 20090226
  2. METFORMIN HCL [Suspect]
     Indication: DRUG USE FOR UNKNOWN INDICATION
     Dosage: 750 MG, QD
     Dates: start: 20080801, end: 20090226
  3. NOVORAPID CHU FLEXPEN [Concomitant]
     Dosage: 32 IU, QD
     Route: 058
     Dates: start: 20080509

REACTIONS (1)
  - HEPATITIS A [None]
